FAERS Safety Report 20384034 (Version 2)
Quarter: 2022Q1

REPORT INFORMATION
  Report Type: Report from Study
  Country: US (occurrence: US)
  Receive Date: 20220127
  Receipt Date: 20220326
  Transmission Date: 20220424
  Serious: Yes (Hospitalization)
  Sender: FDA-Public Use
  Company Number: US-TAKEDA-2021TUS049248

PATIENT
  Age: 51 Year
  Sex: Female
  Weight: 63 kg

DRUGS (57)
  1. HUMAN IMMUNOGLOBULIN G [Suspect]
     Active Substance: HUMAN IMMUNOGLOBULIN G
     Indication: Immunodeficiency common variable
     Dosage: 14 GRAM, 1/WEEK
     Route: 058
     Dates: start: 20210721
  2. ACETAMINOPHEN [Concomitant]
     Active Substance: ACETAMINOPHEN
     Route: 065
  3. DIPHENHYDRAMINE [Concomitant]
     Active Substance: DIPHENHYDRAMINE
     Route: 065
  4. FAMOTIDINE [Concomitant]
     Active Substance: FAMOTIDINE
     Route: 065
  5. HEPARIN [Concomitant]
     Active Substance: HEPARIN SODIUM
     Route: 065
  6. METHYLPREDNISOLONE [Concomitant]
     Active Substance: METHYLPREDNISOLONE
     Route: 065
  7. Lmx [Concomitant]
  8. ZOFRAN [Concomitant]
     Active Substance: ONDANSETRON HYDROCHLORIDE
     Route: 065
  9. MUPIROCIN [Concomitant]
     Active Substance: MUPIROCIN
     Route: 065
  10. SODIUM CHLORIDE [Concomitant]
     Active Substance: SODIUM CHLORIDE
     Route: 065
  11. ALBUTEROL [Concomitant]
     Active Substance: ALBUTEROL
  12. EPINEPHRINE [Concomitant]
     Active Substance: EPINEPHRINE
     Route: 065
  13. DEPO-MEDROL [Concomitant]
     Active Substance: METHYLPREDNISOLONE ACETATE
  14. ZITHROMAX [Concomitant]
     Active Substance: AZITHROMYCIN DIHYDRATE
  15. NICKEL [Concomitant]
     Active Substance: NICKEL
  16. NEURONTIN [Concomitant]
     Active Substance: GABAPENTIN
  17. LYRICA [Concomitant]
     Active Substance: PREGABALIN
  18. ATENOLOL [Concomitant]
     Active Substance: ATENOLOL
  19. PENICILLIN [Concomitant]
     Active Substance: PENICILLIN
  20. CARDIZEM [Concomitant]
     Active Substance: DILTIAZEM HYDROCHLORIDE
  21. SAPHRIS [Concomitant]
     Active Substance: ASENAPINE MALEATE
  22. MOBIC [Concomitant]
     Active Substance: MELOXICAM
  23. PHENERGAN [Concomitant]
     Active Substance: PROMETHAZINE HYDROCHLORIDE
  24. CLINDAMYCIN [Concomitant]
     Active Substance: CLINDAMYCIN
  25. TRAZODONE [Concomitant]
     Active Substance: TRAZODONE HYDROCHLORIDE
  26. TIGAN [Concomitant]
     Active Substance: TRIMETHOBENZAMIDE HYDROCHLORIDE
  27. METRONIDAZOLE [Concomitant]
     Active Substance: METRONIDAZOLE
  28. TETRACYCLINE [Concomitant]
     Active Substance: TETRACYCLINE
  29. ERYTHROMYCIN [Concomitant]
     Active Substance: ERYTHROMYCIN
  30. CEFAZOLIN [Concomitant]
     Active Substance: CEFAZOLIN
  31. SULFAMETHOXAZOLE [Concomitant]
     Active Substance: SULFAMETHOXAZOLE
  32. DOXYCYCLINE [Concomitant]
     Active Substance: DOXYCYCLINE
  33. CLARITHROMYCIN [Concomitant]
     Active Substance: CLARITHROMYCIN
  34. COMPAZINE [Concomitant]
     Active Substance: PROCHLORPERAZINE MALEATE
  35. CROMOLYN [Concomitant]
     Active Substance: CROMOLYN
  36. ESMOLOL [Concomitant]
     Active Substance: ESMOLOL HYDROCHLORIDE
  37. AZELASTINE [Concomitant]
     Active Substance: AZELASTINE
  38. DEXILANT [Concomitant]
     Active Substance: DEXLANSOPRAZOLE
  39. COLACE [Concomitant]
     Active Substance: DOCUSATE SODIUM
  40. SODIUM CHLORIDE [Concomitant]
     Active Substance: SODIUM CHLORIDE
     Route: 065
  41. QVAR [Concomitant]
     Active Substance: BECLOMETHASONE DIPROPIONATE
     Route: 065
  42. VYVANSE [Concomitant]
     Active Substance: LISDEXAMFETAMINE DIMESYLATE
     Route: 065
  43. VITAMIN D3 [Concomitant]
     Active Substance: CHOLECALCIFEROL
     Route: 065
  44. IPRATROPIUM BROMIDE [Concomitant]
     Active Substance: IPRATROPIUM BROMIDE
     Route: 065
  45. PULMICORT TURBUHALER [Concomitant]
     Active Substance: BUDESONIDE
     Route: 065
  46. LEVOTHYROXINE SODIUM [Concomitant]
     Active Substance: LEVOTHYROXINE SODIUM
     Route: 065
  47. ALBUTEROL SULFATE [Concomitant]
     Active Substance: ALBUTEROL SULFATE
     Route: 065
  48. MELATONIN [Concomitant]
     Active Substance: MELATONIN
     Route: 065
  49. BUPROPION [Concomitant]
     Active Substance: BUPROPION
     Route: 065
  50. ALLEGRA [Concomitant]
     Active Substance: FEXOFENADINE HYDROCHLORIDE
     Route: 065
  51. DILAUDID [Concomitant]
     Active Substance: HYDROMORPHONE HYDROCHLORIDE
     Route: 065
  52. TYLENOL EXTRA STRENGTH [Concomitant]
     Active Substance: ACETAMINOPHEN
  53. KEFLEX [Concomitant]
     Active Substance: CEPHALEXIN
  54. CEFDINIR [Concomitant]
     Active Substance: CEFDINIR
  55. CEPHALEXIN [Concomitant]
     Active Substance: CEPHALEXIN
  56. DIPHENHYDRAMINE HYDROCHLORIDE [Concomitant]
     Active Substance: DIPHENHYDRAMINE HYDROCHLORIDE
  57. BENADRYL [Concomitant]
     Active Substance: DIPHENHYDRAMINE HYDROCHLORIDE

REACTIONS (10)
  - Hospitalisation [Unknown]
  - Infection [Unknown]
  - Middle ear effusion [Unknown]
  - Sinus disorder [Unknown]
  - Road traffic accident [Unknown]
  - Infusion site extravasation [Unknown]
  - Pyrexia [Unknown]
  - Incorrect dose administered [Unknown]
  - Device leakage [Unknown]
  - Device infusion issue [Unknown]

NARRATIVE: CASE EVENT DATE: 20211108
